FAERS Safety Report 7449494-8 (Version None)
Quarter: 2011Q2

REPORT INFORMATION
  Report Type: 
  Country: None (occurrence: None)
  Receive Date: 20110502
  Receipt Date: 20110420
  Transmission Date: 20111010
  Serious: Yes (Other)
  Sender: FDA-Public Use
  Company Number: SG-BAYER-2011-034418

PATIENT
  Age: 59 Year
  Sex: Female

DRUGS (2)
  1. MEFENAMIC ACID [Interacting]
  2. ASPIRIN [Suspect]

REACTIONS (1)
  - ANGIOEDEMA [None]
